FAERS Safety Report 6941492-3 (Version None)
Quarter: 2010Q3

REPORT INFORMATION
  Report Type: 
  Country: None (occurrence: None)
  Receive Date: 20100825
  Receipt Date: 20100812
  Transmission Date: 20110219
  Serious: Yes (Hospitalization)
  Sender: FDA-Public Use
  Company Number: KR-AMGEN-QUU432642

PATIENT
  Age: 53 Year
  Sex: Male

DRUGS (4)
  1. ENBREL [Suspect]
     Indication: ANKYLOSING SPONDYLITIS
     Dosage: NOT PROVIDED
     Route: 058
  2. ENBREL [Suspect]
     Dosage: NOT PROVIDED
     Route: 058
  3. ENBREL [Suspect]
     Dosage: NOT PROVIDED
     Route: 058
     Dates: start: 20080501
  4. VITAMIN D [Concomitant]
     Indication: PSORIASIS

REACTIONS (6)
  - ANKYLOSING SPONDYLITIS [None]
  - ARTHRITIS BACTERIAL [None]
  - CONDITION AGGRAVATED [None]
  - OSTEOARTHRITIS [None]
  - PSORIASIS [None]
  - PULMONARY TUBERCULOSIS [None]
